FAERS Safety Report 15905694 (Version 1)
Quarter: 2019Q1

REPORT INFORMATION
  Report Type: Spontaneous
  Country: FR (occurrence: FR)
  Receive Date: 20190204
  Receipt Date: 20190204
  Transmission Date: 20190417
  Serious: Yes (Life-Threatening)
  Sender: FDA-Public Use
  Company Number: FR-JNJFOC-20190140034

PATIENT
  Age: 86 Year
  Sex: Female

DRUGS (7)
  1. CLOPIDOGREL [Concomitant]
     Active Substance: CLOPIDOGREL BISULFATE
     Route: 065
  2. MOLSIDOMINE [Concomitant]
     Active Substance: MOLSIDOMINE
     Route: 065
  3. REMINYL [Suspect]
     Active Substance: GALANTAMINE
     Indication: PRODUCT USED FOR UNKNOWN INDICATION
     Dosage: 24 MG, DAILY
     Route: 048
     Dates: start: 201308, end: 20131102
  4. TEMERIT [Suspect]
     Active Substance: NEBIVOLOL
     Indication: PRODUCT USED FOR UNKNOWN INDICATION
     Route: 048
     Dates: end: 20131102
  5. CO DIOVAN [Concomitant]
     Active Substance: HYDROCHLOROTHIAZIDE\VALSARTAN
     Route: 065
  6. IPERTEN [Suspect]
     Active Substance: MANIDIPINE
     Indication: PRODUCT USED FOR UNKNOWN INDICATION
     Dosage: 10 MG, DAILY
     Route: 048
     Dates: end: 20131102
  7. EZETIMIBE. [Concomitant]
     Active Substance: EZETIMIBE
     Route: 065

REACTIONS (2)
  - Arrhythmia [Recovered/Resolved]
  - Loss of consciousness [Recovered/Resolved]

NARRATIVE: CASE EVENT DATE: 20131102
